FAERS Safety Report 23040762 (Version 2)
Quarter: 2023Q4

REPORT INFORMATION
  Report Type: Spontaneous
  Country: IT (occurrence: IT)
  Receive Date: 20231006
  Receipt Date: 20231009
  Transmission Date: 20240109
  Serious: Yes (Hospitalization, Other)
  Sender: FDA-Public Use
  Company Number: IT-BAUSCHBL-2023BNL009412

PATIENT
  Age: 12 Year
  Sex: Female

DRUGS (4)
  1. DEXAMETHASONE [Suspect]
     Active Substance: DEXAMETHASONE
     Indication: Pneumonia mycoplasmal
     Route: 065
  2. DEVICE [Suspect]
     Active Substance: DEVICE
     Indication: Pneumonia mycoplasmal
     Route: 065
  3. AZITHROMYCIN [Concomitant]
     Active Substance: AZITHROMYCIN
     Indication: Evidence based treatment
  4. ERYTHROMYCIN [Concomitant]
     Active Substance: ERYTHROMYCIN
     Indication: Evidence based treatment

REACTIONS (2)
  - Disseminated tuberculosis [Recovered/Resolved]
  - Acute respiratory distress syndrome [Recovered/Resolved]
